FAERS Safety Report 11329592 (Version 1)
Quarter: 2015Q3

REPORT INFORMATION
  Report Type: Spontaneous
  Country: DE (occurrence: None)
  Receive Date: 20150730
  Receipt Date: 20150730
  Transmission Date: 20151125
  Serious: No
  Sender: FDA-Public Use
  Company Number: DE-LHC-2015093

PATIENT
  Age: 83 Year
  Sex: Female

DRUGS (1)
  1. CONOXIA (OXYGEN) (INHALATION GAS) (OXYGEN) (VERUM) [Suspect]
     Active Substance: OXYGEN
     Indication: PRODUCT USED FOR UNKNOWN INDICATION
     Route: 055

REACTIONS (3)
  - Mental impairment [None]
  - Tremor [None]
  - Head discomfort [None]

NARRATIVE: CASE EVENT DATE: 20150721
